FAERS Safety Report 6069088-9 (Version None)
Quarter: 2009Q1

REPORT INFORMATION
  Report Type: 
  Country: None (occurrence: None)
  Receive Date: 20090206
  Receipt Date: 20090123
  Transmission Date: 20090719
  Serious: Yes (Other)
  Sender: FDA-Public Use
  Company Number: PK-ELI_LILLY_AND_COMPANY-PK200901003959

PATIENT
  Age: 60 Year
  Sex: Female

DRUGS (1)
  1. FORTEO [Suspect]
     Indication: BACK PAIN
     Dosage: 20 UG, DAILY (1/D)
     Route: 058
     Dates: start: 20081220, end: 20090120

REACTIONS (4)
  - HEADACHE [None]
  - LOSS OF CONSCIOUSNESS [None]
  - PAIN [None]
  - SOMNOLENCE [None]
